FAERS Safety Report 9127216 (Version 1)
Quarter: 2013Q1

REPORT INFORMATION
  Report Type: Spontaneous
  Country: US (occurrence: US)
  Receive Date: 20130228
  Receipt Date: 20130228
  Transmission Date: 20140127
  Serious: No
  Sender: FDA-Public Use
  Company Number: US-GLAXOSMITHKLINE-A0961975A

PATIENT
  Age: 26 Year
  Sex: Male

DRUGS (1)
  1. LAMICTAL [Suspect]
     Indication: BIPOLAR DISORDER
     Dosage: 100MG TWICE PER DAY
     Route: 048
     Dates: start: 2007, end: 2009

REACTIONS (5)
  - Stomatitis [Not Recovered/Not Resolved]
  - Dental caries [Unknown]
  - Dry mouth [Unknown]
  - Weight decreased [Unknown]
  - Toothache [Unknown]
